FAERS Safety Report 5206131-0 (Version None)
Quarter: 2007Q1

REPORT INFORMATION
  Report Type: 
  Country: None (occurrence: None)
  Receive Date: 20070111
  Receipt Date: 20070103
  Transmission Date: 20070707
  Serious: Yes (Other)
  Sender: FDA-Public Use
  Company Number: US-AMGEN-US203636

PATIENT
  Sex: Female

DRUGS (7)
  1. SENSIPAR [Suspect]
     Indication: HYPERPARATHYROIDISM PRIMARY
     Route: 048
     Dates: start: 20040101
  2. NORVASC [Concomitant]
  3. AMILORIDE/HYDROCHLORTHIAZIDE [Concomitant]
  4. VITAMIN CAP [Concomitant]
  5. ZOMETA [Concomitant]
     Dates: start: 20061001
  6. CALCIUM [Concomitant]
  7. ACTONEL [Concomitant]
     Dates: start: 20040101, end: 20061001

REACTIONS (9)
  - BACK PAIN [None]
  - DIZZINESS [None]
  - FATIGUE [None]
  - HAEMOPTYSIS [None]
  - HEADACHE [None]
  - MALAISE [None]
  - MUSCULAR WEAKNESS [None]
  - NAUSEA [None]
  - POLYCYTHAEMIA [None]
